FAERS Safety Report 9494050 (Version 1)
Quarter: 2013Q3

REPORT INFORMATION
  Report Type: Spontaneous
  Country: US (occurrence: None)
  Receive Date: 20130829
  Receipt Date: 20130829
  Transmission Date: 20140515
  Serious: Yes (Disabling)
  Sender: FDA-Public Use
  Company Number: None

PATIENT
  Age: 54 Year
  Sex: Male
  Weight: 79.38 kg

DRUGS (1)
  1. CIPROFLOXACIN 1000MG TEVA [Suspect]
     Indication: ANTIBIOTIC THERAPY
     Dosage: CIPROFLOXACIN  TWICE DAILY  TAKEN BY MOUTH
     Route: 048
     Dates: start: 20080222, end: 20080601

REACTIONS (2)
  - Tendon rupture [None]
  - Diplopia [None]
